FAERS Safety Report 8021958-8 (Version None)
Quarter: 2012Q1

REPORT INFORMATION
  Report Type: 
  Country: None (occurrence: None)
  Receive Date: 20120104
  Receipt Date: 20111230
  Transmission Date: 20120608
  Serious: Yes (Hospitalization, Other)
  Sender: FDA-Public Use
  Company Number: PHHO2011BR021779

PATIENT
  Sex: Male
  Weight: 86 kg

DRUGS (5)
  1. MYCOPHENOLATE SODIUM [Suspect]
     Indication: RENAL TRANSPLANT
     Dosage: 720 MG, BID
     Route: 048
     Dates: end: 20100515
  2. PREDNISONE TAB [Suspect]
     Indication: RENAL TRANSPLANT
     Dosage: 7.5 MG, QD
     Route: 048
     Dates: start: 20100807, end: 20101221
  3. PREDNISONE TAB [Suspect]
     Dosage: 5 MG, QD
     Route: 048
     Dates: start: 20101222
  4. MYCOPHENOLATE SODIUM [Suspect]
     Dosage: 1080 MG, QD
     Route: 048
     Dates: start: 20100516
  5. TACROLIMUS [Concomitant]
     Indication: RENAL TRANSPLANT
     Dosage: 2 MG, BID
     Route: 048
     Dates: start: 20091225

REACTIONS (1)
  - DEEP VEIN THROMBOSIS [None]
